FAERS Safety Report 7502514-4 (Version None)
Quarter: 2011Q2

REPORT INFORMATION
  Report Type: 
  Country: None (occurrence: None)
  Receive Date: 20110523
  Receipt Date: 20110523
  Transmission Date: 20111010
  Serious: Yes (Hospitalization)
  Sender: FDA-Public Use
  Company Number: None

PATIENT
  Age: 29 Year
  Sex: Female
  Weight: 91.4 kg

DRUGS (1)
  1. BENLYSTA [Suspect]
     Indication: SYSTEMIC LUPUS ERYTHEMATOSUS
     Dosage: 900MG/250CC ONCE IV
     Route: 042
     Dates: start: 20110516

REACTIONS (7)
  - BLOOD PRESSURE INCREASED [None]
  - HYPOXIA [None]
  - HYPOTENSION [None]
  - CHEST DISCOMFORT [None]
  - TACHYCARDIA [None]
  - DYSPNOEA [None]
  - HYPERHIDROSIS [None]
